FAERS Safety Report 17955793 (Version 2)
Quarter: 2020Q3

REPORT INFORMATION
  Report Type: Spontaneous
  Country: US (occurrence: US)
  Receive Date: 20200629
  Receipt Date: 20200730
  Transmission Date: 20201103
  Serious: Yes (Hospitalization)
  Sender: FDA-Public Use
  Company Number: US-ROCHE-2631230

PATIENT
  Age: 52 Year
  Sex: Female

DRUGS (5)
  1. XOLAIR [Suspect]
     Active Substance: OMALIZUMAB
     Indication: IDIOPATHIC URTICARIA
     Dosage: ONGOING:YES
     Route: 058
     Dates: start: 20180731
  2. LIDOCAINE. [Concomitant]
     Active Substance: LIDOCAINE
  3. METHYLPHENIDATE. [Concomitant]
     Active Substance: METHYLPHENIDATE
  4. NAPROXEN. [Concomitant]
     Active Substance: NAPROXEN
  5. XANAX [Concomitant]
     Active Substance: ALPRAZOLAM

REACTIONS (8)
  - Anxiety [Unknown]
  - Cerebral haemorrhage [Unknown]
  - Sneezing [Unknown]
  - Nightmare [Unknown]
  - Seizure [Unknown]
  - Blood pressure measurement [Unknown]
  - Urticaria [Unknown]
  - Hypersensitivity [Unknown]

NARRATIVE: CASE EVENT DATE: 20200624
